FAERS Safety Report 7097638-2 (Version None)
Quarter: 2010Q4

REPORT INFORMATION
  Report Type: 
  Country: None (occurrence: None)
  Receive Date: 20101112
  Receipt Date: 20101104
  Transmission Date: 20110411
  Serious: Yes (Hospitalization)
  Sender: FDA-Public Use
  Company Number: US-BIOGENIDEC-2010BI014243

PATIENT
  Age: 42 Year
  Sex: Female
  Weight: 72 kg

DRUGS (1)
  1. AVONEX [Suspect]
     Indication: MULTIPLE SCLEROSIS
     Route: 030
     Dates: end: 20080301

REACTIONS (10)
  - ABDOMINAL PAIN [None]
  - APHAGIA [None]
  - COLITIS ULCERATIVE [None]
  - CONSTIPATION [None]
  - DEHYDRATION [None]
  - DRUG HYPERSENSITIVITY [None]
  - GASTROINTESTINAL OBSTRUCTION [None]
  - ILEUS [None]
  - PNEUMONIA [None]
  - PNEUMOPERITONEUM [None]
